FAERS Safety Report 10791597 (Version 1)
Quarter: 2015Q1

REPORT INFORMATION
  Report Type: Spontaneous
  Country: GB (occurrence: GB)
  Receive Date: 20150213
  Receipt Date: 20150213
  Transmission Date: 20150721
  Serious: Yes (Hospitalization)
  Sender: FDA-Public Use
  Company Number: GB-ACCORD-028544

PATIENT
  Age: 32 Year
  Sex: Male

DRUGS (3)
  1. BISOPROLOL [Suspect]
     Active Substance: BISOPROLOL
  2. DILTIAZEM [Suspect]
     Active Substance: DILTIAZEM
     Dosage: MODIFIED RELEASE DILTIAZEM
  3. SIMVASTATIN. [Suspect]
     Active Substance: SIMVASTATIN

REACTIONS (8)
  - Intentional overdose [Unknown]
  - Myopathy [Recovering/Resolving]
  - Respiratory acidosis [Recovering/Resolving]
  - Hypoxia [Unknown]
  - Oliguria [Recovering/Resolving]
  - Atrioventricular block complete [Recovering/Resolving]
  - Hypokalaemia [Unknown]
  - Blood creatinine increased [Recovering/Resolving]
